FAERS Safety Report 5005943-6 (Version None)
Quarter: 2006Q1

REPORT INFORMATION
  Report Type: 
  Country: None (occurrence: None)
  Receive Date: 20060320
  Receipt Date: 20050128
  Transmission Date: 20060701
  Serious: Yes (Hospitalization)
  Sender: FDA-Public Use
  Company Number: 2005-01-2079

PATIENT
  Sex: Male

DRUGS (2)
  1. PEG-INTRON [Suspect]
     Indication: HEPATITIS C
     Dosage: OD
  2. REBETOL [Suspect]
     Indication: HEPATITIS C
     Dosage: ORAL
     Route: 048

REACTIONS (6)
  - BIPOLAR DISORDER [None]
  - DRUG INEFFECTIVE [None]
  - HOMICIDAL IDEATION [None]
  - OVERDOSE [None]
  - PSYCHOTIC DISORDER [None]
  - SUICIDAL IDEATION [None]
